FAERS Safety Report 5567789-X (Version None)
Quarter: 2007Q4

REPORT INFORMATION
  Report Type: 
  Country: None (occurrence: None)
  Receive Date: 20071217
  Receipt Date: 20071203
  Transmission Date: 20080405
  Serious: Yes (Hospitalization)
  Sender: FDA-Public Use
  Company Number: 165

PATIENT
  Sex: Male

DRUGS (9)
  1. FAZACLO 25 AND 100 MG ODT  AZUR PHARMA [Suspect]
     Indication: SCHIZOPHRENIA
     Dosage: 475 MG PO DAILY
     Route: 048
     Dates: start: 20070105, end: 20071127
  2. TRICOR [Concomitant]
  3. OMACOR [Concomitant]
  4. ALTACE [Concomitant]
  5. ENALAPRIL [Concomitant]
  6. BUSPAR [Concomitant]
  7. LEVOTHYROXINE SODIUM [Concomitant]
  8. LEXAPRO [Concomitant]
  9. LOPRESSOR [Concomitant]

REACTIONS (1)
  - RENAL FAILURE [None]
